FAERS Safety Report 5806897-2 (Version None)
Quarter: 2008Q3

REPORT INFORMATION
  Report Type: 
  Country: None (occurrence: None)
  Receive Date: 20080711
  Receipt Date: 20080701
  Transmission Date: 20090109
  Serious: Yes (Hospitalization)
  Sender: FDA-Public Use
  Company Number: US-ROCHE-563370

PATIENT
  Sex: Female
  Weight: 72.6 kg

DRUGS (9)
  1. XELODA [Suspect]
     Dosage: DOSAGE REGIMEN REPORTED AS 5/DAY
     Route: 065
     Dates: start: 20080101, end: 20080427
  2. XELODA [Suspect]
     Dosage: DOSE: 1500 MG IN MORNING AND 1000 MG IN EVENING
     Route: 065
     Dates: start: 20080513
  3. TYKERB [Suspect]
     Indication: BREAST CANCER
     Dosage: DOSAGE REGIMEN REPORTED AS 5/DAY
     Route: 065
     Dates: start: 20080101, end: 20080430
  4. SYNTHROID [Concomitant]
  5. ZOLOFT [Concomitant]
  6. TRAZODONE HCL [Concomitant]
     Dosage: DOSE: AT BED TIME
  7. ARIMIDEX [Concomitant]
  8. ADVAIR DISKUS 100/50 [Concomitant]
     Dosage: DRUG REPORTED AS ADVAIR DISKUS ^250/50^
  9. MEGACE [Concomitant]
     Dosage: DRUG REPORTED AS MEGACE ES

REACTIONS (4)
  - DIARRHOEA [None]
  - PANCREATIC ENZYMES INCREASED [None]
  - PANCREATITIS [None]
  - REFLUX GASTRITIS [None]
